FAERS Safety Report 19188199 (Version 1)
Quarter: 2021Q2

REPORT INFORMATION
  Report Type: Spontaneous
  Country: US (occurrence: US)
  Receive Date: 20210427
  Receipt Date: 20210427
  Transmission Date: 20210717
  Serious: No
  Sender: FDA-Public Use
  Company Number: US-INTERSECT ENT, INC.-2109868

PATIENT
  Age: 63 Year
  Sex: Female

DRUGS (1)
  1. SINUVA [Suspect]
     Active Substance: MOMETASONE FUROATE
     Indication: NASAL POLYPS
     Route: 006
     Dates: start: 20200518

REACTIONS (5)
  - Increased viscosity of upper respiratory secretion [None]
  - Nasal crusting [None]
  - Upper-airway cough syndrome [None]
  - Pain in jaw [None]
  - Nasal congestion [None]

NARRATIVE: CASE EVENT DATE: 20200805
